FAERS Safety Report 16737547 (Version 1)
Quarter: 2019Q3

REPORT INFORMATION
  Report Type: Spontaneous
  Country: US (occurrence: US)
  Receive Date: 20190823
  Receipt Date: 20190823
  Transmission Date: 20191005
  Serious: No
  Sender: FDA-Public Use
  Company Number: US-BAUSCH-BL-2019-021447

PATIENT
  Age: 29 Year
  Sex: Female

DRUGS (2)
  1. WALGREENS EYELID RELIEF PRODUCT [Suspect]
     Active Substance: UNSPECIFIED INGREDIENT
     Indication: SWELLING OF EYELID
     Route: 065
     Dates: start: 2019, end: 2019
  2. WALGREENS EYE ALLERGY (NAPHAZOLINE HYDROCHLORIDE\PHENIRAMINE MALEATE) [Suspect]
     Active Substance: NAPHAZOLINE HYDROCHLORIDE\PHENIRAMINE MALEATE
     Indication: EYE ALLERGY
     Dosage: 1 DROP IN EACH EYE
     Route: 047
     Dates: start: 201906, end: 201907

REACTIONS (3)
  - Swelling of eyelid [Recovered/Resolved]
  - Dry eye [Not Recovered/Not Resolved]
  - Erythema of eyelid [Recovering/Resolving]

NARRATIVE: CASE EVENT DATE: 2019
